FAERS Safety Report 14279136 (Version 1)
Quarter: 2017Q4

REPORT INFORMATION
  Report Type: Spontaneous
  Country: US (occurrence: US)
  Receive Date: 20171213
  Receipt Date: 20171213
  Transmission Date: 20180321
  Serious: No
  Sender: FDA-Public Use
  Company Number: US-ASTRAZENECA-2017SF26324

PATIENT
  Sex: Female

DRUGS (2)
  1. NEXIUM 24HR CLEARMINIS [Suspect]
     Active Substance: ESOMEPRAZOLE MAGNESIUM
     Indication: GASTROOESOPHAGEAL REFLUX DISEASE
     Dosage: EVERY OTHER DAY
     Route: 048
  2. NEXIUM 24HR CLEARMINIS [Suspect]
     Active Substance: ESOMEPRAZOLE MAGNESIUM
     Indication: GASTROOESOPHAGEAL REFLUX DISEASE
     Dosage: DAILY(EVERY SINGLE DAY)
     Route: 048

REACTIONS (5)
  - Gastrooesophageal reflux disease [Unknown]
  - Symptom recurrence [Unknown]
  - Malaise [Unknown]
  - Drug ineffective [Unknown]
  - Chest discomfort [Unknown]
